FAERS Safety Report 9932908 (Version 2)
Quarter: 2014Q1

REPORT INFORMATION
  Report Type: Spontaneous
  Country: FR (occurrence: None)
  Receive Date: 20140226
  Receipt Date: 20140321
  Transmission Date: 20141002
  Serious: Yes (Other)
  Sender: FDA-Public Use
  Company Number: 7269966

PATIENT
  Age: 62 Year
  Sex: Female

DRUGS (5)
  1. LEVOTHYROX [Suspect]
     Indication: PRODUCT USED FOR UNKNOWN INDICATION
  2. CRESTOR (ROSUVASTAIN) [Concomitant]
  3. STAGID (METFORMIN EMBONATE) [Concomitant]
  4. FLUOXETINE (FLUOXETINE) [Concomitant]
  5. COVERSYL [Concomitant]

REACTIONS (5)
  - Myocardial infarction [None]
  - Product quality issue [None]
  - Chest pain [None]
  - Vomiting [None]
  - Musculoskeletal stiffness [None]
